FAERS Safety Report 24298615 (Version 1)
Quarter: 2024Q3

REPORT INFORMATION
  Report Type: Other
  Country: IN (occurrence: IN)
  Receive Date: 20240909
  Receipt Date: 20240909
  Transmission Date: 20241016
  Serious: Yes (Other)
  Sender: Everest Life Sciences
  Company Number: IN-Everest Life Sciences LLC-2161386

PATIENT
  Age: 50 Year
  Sex: Female

DRUGS (3)
  1. DAPSONE [Suspect]
     Active Substance: DAPSONE
     Indication: Tuberculoid leprosy
     Route: 065
  2. RIFAMPIN [Suspect]
     Active Substance: RIFAMPIN
     Route: 065
  3. CLOFAZIMINE [Suspect]
     Active Substance: CLOFAZIMINE
     Route: 065

REACTIONS (1)
  - Autoimmune hepatitis [Recovered/Resolved]
